FAERS Safety Report 8366497-X (Version None)
Quarter: 2012Q2

REPORT INFORMATION
  Report Type: 
  Country: None (occurrence: None)
  Receive Date: 20120517
  Receipt Date: 20120511
  Transmission Date: 20120825
  Serious: No
  Sender: FDA-Public Use
  Company Number: US-PFIZER INC-2012115754

PATIENT
  Sex: Female
  Weight: 54.422 kg

DRUGS (6)
  1. LYRICA [Suspect]
     Indication: PERIPHERAL NERVE INJURY
     Dosage: 150 MG, 2X/DAY
     Dates: start: 20080101, end: 20120401
  2. SIMVASTATIN [Concomitant]
     Indication: CARDIAC DISORDER
     Dosage: 20 MG, DAILY
  3. DIGOXIN [Concomitant]
     Indication: CARDIAC DISORDER
     Dosage: 0.25 MG, DAILY
  4. LYRICA [Suspect]
     Dosage: 3X150MG
  5. PLAVIX [Concomitant]
     Indication: CARDIAC DISORDER
     Dosage: 75 MG, DAILY AT NIGHT
  6. ACETYLSALICYLIC ACID [Concomitant]
     Indication: CARDIAC DISORDER
     Dosage: 81 MG, DAILY

REACTIONS (5)
  - DIARRHOEA [None]
  - DEFAECATION URGENCY [None]
  - HEADACHE [None]
  - INSOMNIA [None]
  - PAIN [None]
